FAERS Safety Report 25934318 (Version 2)
Quarter: 2025Q4

REPORT INFORMATION
  Report Type: Spontaneous
  Country: JP (occurrence: JP)
  Receive Date: 20251017
  Receipt Date: 20251120
  Transmission Date: 20260117
  Serious: Yes (Death, Life-Threatening, Hospitalization)
  Sender: MYLAN
  Company Number: JP-MYLANLABS-2025M1087264

PATIENT
  Age: 75 Year
  Sex: Male

DRUGS (56)
  1. CALONAL [Suspect]
     Active Substance: ACETAMINOPHEN
     Indication: Antipyresis
  2. CALONAL [Suspect]
     Active Substance: ACETAMINOPHEN
     Indication: Analgesic therapy
     Route: 065
  3. CALONAL [Suspect]
     Active Substance: ACETAMINOPHEN
     Route: 065
  4. CALONAL [Suspect]
     Active Substance: ACETAMINOPHEN
  5. METHOTREXATE [Suspect]
     Active Substance: METHOTREXATE
     Indication: Central nervous system lymphoma
     Dosage: HIGH DOSE
  6. METHOTREXATE [Suspect]
     Active Substance: METHOTREXATE
     Dosage: HIGH DOSE
     Route: 065
  7. METHOTREXATE [Suspect]
     Active Substance: METHOTREXATE
     Dosage: HIGH DOSE
     Route: 065
  8. METHOTREXATE [Suspect]
     Active Substance: METHOTREXATE
     Dosage: HIGH DOSE
  9. FAMOTIDINE [Suspect]
     Active Substance: FAMOTIDINE
     Indication: Antacid therapy
  10. FAMOTIDINE [Suspect]
     Active Substance: FAMOTIDINE
     Route: 065
  11. FAMOTIDINE [Suspect]
     Active Substance: FAMOTIDINE
     Route: 065
  12. FAMOTIDINE [Suspect]
     Active Substance: FAMOTIDINE
  13. RAMELTEON [Suspect]
     Active Substance: RAMELTEON
     Indication: Drug therapy
  14. RAMELTEON [Suspect]
     Active Substance: RAMELTEON
     Route: 065
  15. RAMELTEON [Suspect]
     Active Substance: RAMELTEON
     Route: 065
  16. RAMELTEON [Suspect]
     Active Substance: RAMELTEON
  17. CEFAZOLIN [Suspect]
     Active Substance: CEFAZOLIN
     Indication: Antibiotic therapy
  18. CEFAZOLIN [Suspect]
     Active Substance: CEFAZOLIN
     Route: 065
  19. CEFAZOLIN [Suspect]
     Active Substance: CEFAZOLIN
     Route: 065
  20. CEFAZOLIN [Suspect]
     Active Substance: CEFAZOLIN
  21. METHYLPREDNISOLONE [Suspect]
     Active Substance: METHYLPREDNISOLONE
     Indication: Toxic epidermal necrolysis
  22. METHYLPREDNISOLONE [Suspect]
     Active Substance: METHYLPREDNISOLONE
     Route: 065
  23. METHYLPREDNISOLONE [Suspect]
     Active Substance: METHYLPREDNISOLONE
     Route: 065
  24. METHYLPREDNISOLONE [Suspect]
     Active Substance: METHYLPREDNISOLONE
  25. IMMUNE GLOBULIN NOS [Suspect]
     Active Substance: IMMUNE GLOBULIN NOS
     Indication: Toxic epidermal necrolysis
     Dosage: 2G/KG/DAY
  26. IMMUNE GLOBULIN NOS [Suspect]
     Active Substance: IMMUNE GLOBULIN NOS
     Dosage: 2G/KG/DAY
     Route: 042
  27. IMMUNE GLOBULIN NOS [Suspect]
     Active Substance: IMMUNE GLOBULIN NOS
     Dosage: 2G/KG/DAY
     Route: 042
  28. IMMUNE GLOBULIN NOS [Suspect]
     Active Substance: IMMUNE GLOBULIN NOS
     Dosage: 2G/KG/DAY
  29. MICAFUNGIN [Suspect]
     Active Substance: MICAFUNGIN SODIUM
     Indication: Antifungal treatment
  30. MICAFUNGIN [Suspect]
     Active Substance: MICAFUNGIN SODIUM
     Route: 065
  31. MICAFUNGIN [Suspect]
     Active Substance: MICAFUNGIN SODIUM
     Route: 065
  32. MICAFUNGIN [Suspect]
     Active Substance: MICAFUNGIN SODIUM
  33. PIPERACILLIN AND TAZOBACTAM [Concomitant]
     Active Substance: PIPERACILLIN SODIUM\TAZOBACTAM SODIUM
     Indication: Evidence based treatment
  34. PIPERACILLIN AND TAZOBACTAM [Concomitant]
     Active Substance: PIPERACILLIN SODIUM\TAZOBACTAM SODIUM
     Route: 065
  35. PIPERACILLIN AND TAZOBACTAM [Concomitant]
     Active Substance: PIPERACILLIN SODIUM\TAZOBACTAM SODIUM
     Route: 065
  36. PIPERACILLIN AND TAZOBACTAM [Concomitant]
     Active Substance: PIPERACILLIN SODIUM\TAZOBACTAM SODIUM
  37. MEROPENEM [Concomitant]
     Active Substance: MEROPENEM
     Indication: Haematological infection
  38. MEROPENEM [Concomitant]
     Active Substance: MEROPENEM
     Indication: Mycobacterial infection
     Route: 065
  39. MEROPENEM [Concomitant]
     Active Substance: MEROPENEM
     Route: 065
  40. MEROPENEM [Concomitant]
     Active Substance: MEROPENEM
  41. IMIPENEM AND CILASTATIN [Concomitant]
     Active Substance: CILASTATIN SODIUM\IMIPENEM
     Indication: Haematological infection
  42. IMIPENEM AND CILASTATIN [Concomitant]
     Active Substance: CILASTATIN SODIUM\IMIPENEM
     Indication: Mycobacterial infection
     Route: 065
  43. IMIPENEM AND CILASTATIN [Concomitant]
     Active Substance: CILASTATIN SODIUM\IMIPENEM
     Route: 065
  44. IMIPENEM AND CILASTATIN [Concomitant]
     Active Substance: CILASTATIN SODIUM\IMIPENEM
  45. AZITHROMYCIN [Concomitant]
     Active Substance: AZITHROMYCIN
     Indication: Haematological infection
  46. AZITHROMYCIN [Concomitant]
     Active Substance: AZITHROMYCIN
     Indication: Mycobacterial infection
     Route: 042
  47. AZITHROMYCIN [Concomitant]
     Active Substance: AZITHROMYCIN
     Route: 042
  48. AZITHROMYCIN [Concomitant]
     Active Substance: AZITHROMYCIN
  49. LEVOFLOXACIN [Concomitant]
     Active Substance: LEVOFLOXACIN
     Indication: Haematological infection
  50. LEVOFLOXACIN [Concomitant]
     Active Substance: LEVOFLOXACIN
     Indication: Mycobacterial infection
     Route: 065
  51. LEVOFLOXACIN [Concomitant]
     Active Substance: LEVOFLOXACIN
     Route: 065
  52. LEVOFLOXACIN [Concomitant]
     Active Substance: LEVOFLOXACIN
  53. LINEZOLID [Concomitant]
     Active Substance: LINEZOLID
     Indication: Evidence based treatment
  54. LINEZOLID [Concomitant]
     Active Substance: LINEZOLID
     Route: 065
  55. LINEZOLID [Concomitant]
     Active Substance: LINEZOLID
     Route: 065
  56. LINEZOLID [Concomitant]
     Active Substance: LINEZOLID

REACTIONS (5)
  - Multiple organ dysfunction syndrome [Fatal]
  - Toxic epidermal necrolysis [Fatal]
  - Intestinal ischaemia [Unknown]
  - Acute respiratory failure [Unknown]
  - Haemodynamic instability [Unknown]
